FAERS Safety Report 5457773-9 (Version None)
Quarter: 2007Q3

REPORT INFORMATION
  Report Type: 
  Country: None (occurrence: None)
  Receive Date: 20070917
  Receipt Date: 20070904
  Transmission Date: 20080115
  Serious: Yes (Other)
  Sender: FDA-Public Use
  Company Number: 018207

PATIENT
  Age: 62 Year
  Sex: Female

DRUGS (3)
  1. MEDROXYPROGESTERONE [Suspect]
     Dates: start: 19881024, end: 19900101
  2. PREMARIN [Suspect]
     Dates: start: 19881024, end: 19900101
  3. PREMPRO [Suspect]
     Dates: start: 19970314, end: 20011121

REACTIONS (1)
  - BREAST CANCER FEMALE [None]
